FAERS Safety Report 5745432-4 (Version None)
Quarter: 2008Q2

REPORT INFORMATION
  Report Type: 
  Country: None (occurrence: None)
  Receive Date: 20080521
  Receipt Date: 20080516
  Transmission Date: 20081010
  Serious: Yes (Hospitalization)
  Sender: FDA-Public Use
  Company Number: GB-AVENTIS-200814579GDDC

PATIENT
  Age: 58 Year
  Sex: Male

DRUGS (5)
  1. GLIMEPIRIDE [Suspect]
     Dates: start: 20070912
  2. METFORMIN HCL [Concomitant]
     Dates: start: 20020704
  3. ASPIRIN [Concomitant]
     Dates: start: 20020703
  4. SIMVASTATIN [Concomitant]
     Dates: start: 20030812
  5. RAMIPRIL [Concomitant]
     Dates: start: 20031215

REACTIONS (1)
  - CHEST PAIN [None]
